FAERS Safety Report 9100431 (Version 1)
Quarter: 2013Q1

REPORT INFORMATION
  Report Type: Spontaneous
  Country: NL (occurrence: NL)
  Receive Date: 20130215
  Receipt Date: 20130215
  Transmission Date: 20140127
  Serious: Yes (Life-Threatening, Hospitalization, Other)
  Sender: FDA-Public Use
  Company Number: NL-PFIZER INC-2013057630

PATIENT
  Age: 53 Year
  Sex: Female
  Weight: 94 kg

DRUGS (7)
  1. CISPLATIN [Suspect]
     Indication: NEUROENDOCRINE TUMOUR
     Dosage: 150 MG (CONC 1 MG/ML), 1X/DAY
     Route: 042
     Dates: start: 20130109, end: 20130117
  2. ETOPOSIDE [Suspect]
     Indication: NEUROENDOCRINE TUMOUR
     Dosage: 200 MG (CONC 20 MG/ML), 1X/DAY
     Route: 042
     Dates: start: 20130109, end: 20130117
  3. ENALAPRIL MALEATE [Concomitant]
     Dosage: 10 MG, 1X/DAY
     Route: 048
  4. DEXAMETHASON [Concomitant]
     Dosage: 4 MG (4MG/ML AMPUL 1ML), 1X/DAY
     Route: 030
  5. EMEND [Concomitant]
     Dosage: 125 MG, 1X/DAY
     Route: 048
  6. MAGNESIUM HYDROXIDE [Concomitant]
     Dosage: 724 MG, 3X/DAY
     Route: 048
  7. SALOFALK [Concomitant]
     Dosage: 3 G, 1X/DAY
     Route: 048

REACTIONS (1)
  - Arterial thrombosis [Recovered/Resolved with Sequelae]
